FAERS Safety Report 4796341-9 (Version None)
Quarter: 2005Q4

REPORT INFORMATION
  Report Type: 
  Country: None (occurrence: None)
  Receive Date: 20051007
  Receipt Date: 20050927
  Transmission Date: 20060501
  Serious: Yes (Other)
  Sender: FDA-Public Use
  Company Number: 27469

PATIENT
  Age: 74 Year
  Sex: Female

DRUGS (1)
  1. ALDARA [Suspect]
     Indication: LENTIGO MALIGNA STAGE UNSPECIFIED
     Dosage: (1 SACHET, 5 IN 1 WEEK(S)); TOPICAL
     Route: 061
     Dates: start: 20050901

REACTIONS (4)
  - ACCIDENTAL EXPOSURE [None]
  - CONJUNCTIVITIS [None]
  - EYE IRRITATION [None]
  - OTORRHOEA [None]
